FAERS Safety Report 6420808-0 (Version None)
Quarter: 2009Q4

REPORT INFORMATION
  Report Type: 
  Country: None (occurrence: None)
  Receive Date: 20091030
  Receipt Date: 20091023
  Transmission Date: 20100525
  Serious: Yes (Other)
  Sender: FDA-Public Use
  Company Number: US-SANOFI-SYNTHELABO-A03200904478

PATIENT
  Sex: Female
  Weight: 62.8 kg

DRUGS (10)
  1. MULTAQ [Suspect]
     Indication: ATRIAL FIBRILLATION
     Route: 048
     Dates: start: 20090813, end: 20090904
  2. MULTAQ [Suspect]
     Route: 048
     Dates: start: 20090904, end: 20090914
  3. MULTAQ [Suspect]
     Route: 048
     Dates: start: 20090914, end: 20091014
  4. RASAGILINE [Concomitant]
     Indication: DRUG USE FOR UNKNOWN INDICATION
     Dosage: UNK
     Route: 065
  5. WARFARIN SODIUM [Concomitant]
     Indication: ATRIAL FIBRILLATION
     Route: 065
     Dates: start: 20030101
  6. MAGNESIUM OXIDE [Concomitant]
     Indication: MITRAL VALVE PROLAPSE
     Route: 065
     Dates: start: 20020101
  7. TRIHEXIDYL [Concomitant]
     Indication: DRUG USE FOR UNKNOWN INDICATION
     Route: 065
  8. CARBIDOPA [Concomitant]
     Indication: DRUG USE FOR UNKNOWN INDICATION
     Route: 065
  9. OMEPRAZOLE [Concomitant]
     Dosage: UNK
     Route: 065
  10. COREG [Concomitant]
     Route: 065

REACTIONS (4)
  - DRUG INTOLERANCE [None]
  - FATIGUE [None]
  - HYPOTENSION [None]
  - NAUSEA [None]
